FAERS Safety Report 5427091-3 (Version None)
Quarter: 2007Q3

REPORT INFORMATION
  Report Type: 
  Country: None (occurrence: None)
  Receive Date: 20070824
  Receipt Date: 20070824
  Transmission Date: 20080115
  Serious: Yes (Life-Threatening)
  Sender: FDA-Public Use
  Company Number: None

PATIENT
  Sex: Female
  Weight: 57.7 kg

DRUGS (9)
  1. LEVOFLOXACIN [Suspect]
     Indication: URINARY TRACT INFECTION
     Dosage: 500MG IV Q24HRS
     Route: 042
     Dates: start: 20070412
  2. FLUCONAZOLE [Concomitant]
  3. LANSOPRAZOLE [Concomitant]
  4. VANCOMYCIN [Concomitant]
  5. SERTRALINE [Concomitant]
  6. FUROSEMIDE [Concomitant]
  7. HETASTARCH 6% IN 0.9% SODIUM CHLORIDE IN PLASTIC CONTAINER [Concomitant]
  8. HEPARIN [Concomitant]
  9. TPN [Concomitant]

REACTIONS (3)
  - ELECTROCARDIOGRAM QT PROLONGED [None]
  - ELECTROCARDIOGRAM T WAVE INVERSION [None]
  - SINUS BRADYCARDIA [None]
